FAERS Safety Report 5550824-2 (Version None)
Quarter: 2007Q4

REPORT INFORMATION
  Report Type: 
  Country: None (occurrence: None)
  Receive Date: 20071212
  Receipt Date: 20071130
  Transmission Date: 20080405
  Serious: Yes (Hospitalization)
  Sender: FDA-Public Use
  Company Number: US-ROCHE-534506

PATIENT
  Sex: Male

DRUGS (2)
  1. PEG-INTERFERON A-2A (RO 25-8310) [Suspect]
     Route: 065
     Dates: start: 20070614
  2. RIBAVIRIN [Suspect]
     Route: 065
     Dates: start: 20070614

REACTIONS (4)
  - NERVE INJURY [None]
  - PAIN IN EXTREMITY [None]
  - SURGERY [None]
  - TREMOR [None]
